FAERS Safety Report 23553116 (Version 2)
Quarter: 2024Q2

REPORT INFORMATION
  Report Type: Report from Study
  Country: CA (occurrence: CA)
  Receive Date: 20240222
  Receipt Date: 20240530
  Transmission Date: 20240716
  Serious: Yes (Other)
  Sender: FDA-Public Use
  Company Number: CA-PFIZER INC-202400046513

PATIENT
  Age: 45 Year
  Sex: Female

DRUGS (1)
  1. RITUXIMAB [Suspect]
     Active Substance: RITUXIMAB
     Indication: Granulomatosis with polyangiitis
     Dosage: 500 MG
     Route: 042

REACTIONS (13)
  - Feeling abnormal [Recovering/Resolving]
  - Infection [Recovering/Resolving]
  - Pneumonia [Recovering/Resolving]
  - Bronchial disorder [Recovering/Resolving]
  - Chills [Recovering/Resolving]
  - Ear pain [Recovering/Resolving]
  - Headache [Recovering/Resolving]
  - Illness [Recovering/Resolving]
  - Oropharyngeal pain [Recovering/Resolving]
  - Paranasal sinus discomfort [Recovering/Resolving]
  - Productive cough [Recovering/Resolving]
  - Tracheal disorder [Recovering/Resolving]
  - Inappropriate schedule of product administration [Unknown]
